FAERS Safety Report 13618417 (Version 1)
Quarter: 2017Q2

REPORT INFORMATION
  Report Type: Report from Study
  Country: SE (occurrence: SE)
  Receive Date: 20170606
  Receipt Date: 20170606
  Transmission Date: 20170830
  Serious: Yes (Other)
  Sender: FDA-Public Use
  Company Number: SE-GILEAD-2017-0276383

PATIENT
  Age: 32 Year
  Sex: Female

DRUGS (1)
  1. SOFOSBUVIR W/VELPATASVIR [Suspect]
     Active Substance: SOFOSBUVIR\VELPATASVIR
     Indication: HEPATITIS C
     Route: 065

REACTIONS (1)
  - Infertility [Unknown]

NARRATIVE: CASE EVENT DATE: 1985
